FAERS Safety Report 12815283 (Version 1)
Quarter: 2016Q4

REPORT INFORMATION
  Report Type: Spontaneous
  Country: GB (occurrence: GB)
  Receive Date: 20161005
  Receipt Date: 20161005
  Transmission Date: 20170207
  Serious: Yes (Hospitalization)
  Sender: FDA-Public Use
  Company Number: GB-WARNER CHILCOTT, LLC-1058030

PATIENT
  Age: 61 Year
  Sex: Female

DRUGS (8)
  1. ACTONEL [Suspect]
     Active Substance: RISEDRONATE SODIUM
     Indication: OSTEOPOROSIS
     Route: 048
     Dates: start: 20140630, end: 20150914
  2. COLOFAC [Concomitant]
     Active Substance: MEBEVERINE HYDROCHLORIDE
  3. CALCICHEW-D3 FORTE [Concomitant]
     Active Substance: CALCIUM\CHOLECALCIFEROL
  4. ELLESTE-SOLO [Concomitant]
  5. PARACETAMOL [Concomitant]
     Active Substance: ACETAMINOPHEN
  6. FENTANYL. [Concomitant]
     Active Substance: FENTANYL
  7. MEBEVERINE [Concomitant]
     Active Substance: MEBEVERINE
  8. PROPRANOLOL [Concomitant]
     Active Substance: PROPRANOLOL\PROPRANOLOL HYDROCHLORIDE

REACTIONS (10)
  - Migraine [Unknown]
  - Nausea [Unknown]
  - Feeling abnormal [Recovered/Resolved with Sequelae]
  - Vomiting [Unknown]
  - Headache [Unknown]
  - Arthralgia [Recovered/Resolved with Sequelae]
  - Decreased appetite [Unknown]
  - Malaise [Unknown]
  - Photosensitivity reaction [Unknown]
  - Cataract [Unknown]
